FAERS Safety Report 9928981 (Version 2)
Quarter: 2014Q1

REPORT INFORMATION
  Report Type: Spontaneous
  Country: US (occurrence: US)
  Receive Date: 20140227
  Receipt Date: 20140305
  Transmission Date: 20141002
  Serious: Yes (Other)
  Sender: FDA-Public Use
  Company Number: US-BAXTER-2014BAX009167

PATIENT
  Sex: Female

DRUGS (5)
  1. DIANEAL LOW CALCIUM [Suspect]
     Indication: RENAL FAILURE CHRONIC
     Route: 033
  2. DIANEAL LOW CALCIUM [Suspect]
     Route: 033
     Dates: start: 2013
  3. DIANEAL LOW CALCIUM [Suspect]
     Indication: RENAL FAILURE CHRONIC
     Route: 033
  4. DIANEAL LOW CALCIUM [Suspect]
     Route: 033
     Dates: start: 2013
  5. SANTYL OINTMENT (NO PREF. NAME) [Suspect]

REACTIONS (5)
  - Soft tissue necrosis [Recovered/Resolved]
  - Oedema peripheral [Not Recovered/Not Resolved]
  - Thrombosis [Recovered/Resolved]
  - Application site erosion [Recovered/Resolved]
  - Application site exfoliation [Recovered/Resolved]
